FAERS Safety Report 14468436 (Version 1)
Quarter: 2018Q1

REPORT INFORMATION
  Report Type: Other
  Country: US (occurrence: US)
  Receive Date: 20180131
  Receipt Date: 20180131
  Transmission Date: 20180509
  Serious: No
  Sender: FDA-Public Use
  Company Number: US-ACORDA-ACO_138940_2017

PATIENT
  Age: 60 Year
  Sex: Female

DRUGS (1)
  1. AMPYRA [Suspect]
     Active Substance: DALFAMPRIDINE
     Indication: MULTIPLE SCLEROSIS
     Dosage: 10 MG, BID
     Route: 048
     Dates: start: 20160927

REACTIONS (5)
  - Urine analysis abnormal [Unknown]
  - Alanine aminotransferase increased [Unknown]
  - B-lymphocyte count decreased [Unknown]
  - T-lymphocyte count increased [Unknown]
  - CD4 lymphocytes increased [Unknown]

NARRATIVE: CASE EVENT DATE: 20170601
